FAERS Safety Report 6656120-4 (Version None)
Quarter: 2010Q1

REPORT INFORMATION
  Report Type: 
  Country: None (occurrence: None)
  Receive Date: 20100329
  Receipt Date: 20100319
  Transmission Date: 20100710
  Serious: Yes (Other)
  Sender: FDA-Public Use
  Company Number: B0643372A

PATIENT
  Age: 12 Year
  Sex: Male

DRUGS (4)
  1. LAMIVUDINE [Suspect]
     Indication: HIV INFECTION
  2. EFAVIRENZ [Suspect]
     Indication: HIV INFECTION
  3. STAVUDINE [Suspect]
     Indication: HIV INFECTION
  4. ITRACONAZOLE [Concomitant]
     Dosage: 200MG PER DAY

REACTIONS (9)
  - ARTHRITIS [None]
  - CD4 LYMPHOCYTES [None]
  - CONDITION AGGRAVATED [None]
  - IMMUNE RECONSTITUTION SYNDROME [None]
  - INFECTION [None]
  - LYMPHADENOPATHY [None]
  - PENICILLIOSIS [None]
  - PYREXIA [None]
  - SKIN LESION [None]
